FAERS Safety Report 14295456 (Version 1)
Quarter: 2017Q4

REPORT INFORMATION
  Report Type: Spontaneous
  Country: US (occurrence: US)
  Receive Date: 20171215
  Receipt Date: 20171215
  Transmission Date: 20180321
  Serious: Yes (Death, Hospitalization)
  Sender: FDA-Public Use
  Company Number: None

PATIENT
  Age: 22 Year
  Sex: Male
  Weight: 116.4 kg

DRUGS (6)
  1. DEXAMETHASONE. [Suspect]
     Active Substance: DEXAMETHASONE
     Dates: end: 20171212
  2. ONCASPAR [Suspect]
     Active Substance: PEGASPARGASE
     Dates: end: 20171202
  3. DAUNORUBICIN [Suspect]
     Active Substance: DAUNORUBICIN
     Dates: end: 20171206
  4. VINCRISTINE SULFATE. [Suspect]
     Active Substance: VINCRISTINE SULFATE
     Dates: end: 20171206
  5. CYTARABINE. [Suspect]
     Active Substance: CYTARABINE
     Dates: end: 20171115
  6. METHOTREXATE. [Suspect]
     Active Substance: METHOTREXATE
     Dates: end: 20171213

REACTIONS (10)
  - Lactic acidosis [None]
  - Septic embolus [None]
  - Sinus tachycardia [None]
  - Fungal test positive [None]
  - Sepsis [None]
  - Fluid overload [None]
  - Cardiac arrest [None]
  - Haemoptysis [None]
  - Pulmonary artery aneurysm [None]
  - Cardio-respiratory arrest [None]

NARRATIVE: CASE EVENT DATE: 20171214
